FAERS Safety Report 12210377 (Version 4)
Quarter: 2018Q4

REPORT INFORMATION
  Report Type: Spontaneous
  Country: US (occurrence: US)
  Receive Date: 20160325
  Receipt Date: 20181219
  Transmission Date: 20190204
  Serious: Yes (Other)
  Sender: FDA-Public Use
  Company Number: US-TEVA-646225ACC

PATIENT
  Sex: Female

DRUGS (3)
  1. PARAGARD T 380A [Suspect]
     Active Substance: COPPER
     Indication: CONTRACEPTION
     Route: 065
     Dates: start: 20151223, end: 20160318
  2. PROGESTERONE. [Concomitant]
     Active Substance: PROGESTERONE
     Dates: start: 20151223
  3. WP THYROID [Concomitant]
     Active Substance: THYROID, PORCINE
     Dates: start: 20160309

REACTIONS (2)
  - Pregnancy on contraceptive [Unknown]
  - Maternal exposure during pregnancy [Unknown]
